FAERS Safety Report 4646227-5 (Version None)
Quarter: 2005Q2

REPORT INFORMATION
  Report Type: 
  Country: None (occurrence: None)
  Receive Date: 20050422
  Receipt Date: 20050422
  Transmission Date: 20051028
  Serious: No
  Sender: FDA-Public Use
  Company Number: None

PATIENT
  Sex: Female
  Weight: 87 kg

DRUGS (7)
  1. ALLOPURINOL [Suspect]
     Indication: ACUTE LYMPHOCYTIC LEUKAEMIA
     Dosage: 300 MG PO QD ON DAYS 1-14
     Route: 048
     Dates: start: 20050323
  2. CYCLOPHOSPHAMIDE [Suspect]
     Dosage: SEE IMAGE
     Route: 042
  3. DAUNORUBICIN [Suspect]
     Dosage: 80 MG/M2/DAY X 3 DAYS IV ON DAYS 1, 2, 3.
     Route: 042
  4. VINCRISTINE [Suspect]
     Dosage: SEE IMAGE
     Route: 042
  5. DEXAMETHASONE [Suspect]
     Dosage: SEE IMAGE
     Route: 048
  6. ELSPAR [Suspect]
     Dosage: SEE IMAGE
     Route: 058
  7. NEUPOGEN [Suspect]
     Dosage: SEE IMAGE
     Route: 058

REACTIONS (12)
  - CARDIAC ARREST [None]
  - DIABETIC KETOACIDOSIS [None]
  - FEBRILE NEUTROPENIA [None]
  - HEPATIC CANDIDIASIS [None]
  - KLEBSIELLA BACTERAEMIA [None]
  - OLIGURIA [None]
  - RENAL FAILURE [None]
  - RENAL TUBULAR NECROSIS [None]
  - STAPHYLOCOCCAL BACTERAEMIA [None]
  - STENOTROPHOMONAS INFECTION [None]
  - SYSTEMIC CANDIDA [None]
  - TUMOUR LYSIS SYNDROME [None]
